FAERS Safety Report 17695308 (Version 1)
Quarter: 2020Q2

REPORT INFORMATION
  Report Type: Spontaneous
  Country: US (occurrence: US)
  Receive Date: 20200422
  Receipt Date: 20200422
  Transmission Date: 20200714
  Serious: Yes (Other)
  Sender: FDA-Public Use
  Company Number: US-NAPPMUNDI-USA-2019-0149418

PATIENT
  Sex: Female
  Weight: 54.42 kg

DRUGS (4)
  1. OXYCODONE HYDROCHLORIDE (SIMILAR TO NDA 22-272) [Suspect]
     Active Substance: OXYCODONE HYDROCHLORIDE
     Dosage: 8X20 MG, DAILY
     Route: 048
     Dates: end: 2016
  2. OXYCONTIN [Suspect]
     Active Substance: OXYCODONE HYDROCHLORIDE
     Indication: SPINAL COLUMN INJURY
     Dosage: 10X80 MG, DAILY
     Route: 048
     Dates: start: 2007
  3. OXYCODONE HYDROCHLORIDE (SIMILAR TO NDA 22-272) [Suspect]
     Active Substance: OXYCODONE HYDROCHLORIDE
     Indication: SPINAL COLUMN INJURY
     Dosage: 10X20 MG, DAILY
     Route: 048
     Dates: start: 2007
  4. OXYCONTIN [Suspect]
     Active Substance: OXYCODONE HYDROCHLORIDE
     Dosage: 8X80 MG, DAILY
     Route: 048
     Dates: end: 2016

REACTIONS (4)
  - Muscle twitching [Recovered/Resolved]
  - Drug withdrawal syndrome [Recovered/Resolved]
  - Screaming [Recovered/Resolved]
  - Drug dependence [Recovering/Resolving]

NARRATIVE: CASE EVENT DATE: 2016
